FAERS Safety Report 9398063 (Version 1)
Quarter: 2013Q3

REPORT INFORMATION
  Report Type: Spontaneous
  Country: US (occurrence: US)
  Receive Date: 20130712
  Receipt Date: 20130712
  Transmission Date: 20140515
  Serious: No
  Sender: FDA-Public Use
  Company Number: US-GLAXOSMITHKLINE-A0924397A

PATIENT
  Age: 71 Year
  Sex: Male

DRUGS (13)
  1. FLOVENT [Suspect]
     Indication: BRONCHITIS
     Dosage: 1PUFF TWICE PER DAY
     Route: 055
     Dates: start: 20110415
  2. PLAVIX [Concomitant]
  3. BLOOD PRESSURE MEDICATION [Concomitant]
  4. CRESTOR [Concomitant]
  5. DIOVAN [Concomitant]
  6. FAMOTIDINE [Concomitant]
  7. ASPIRIN [Concomitant]
  8. VITAMINS [Concomitant]
  9. FOLIC ACID [Concomitant]
  10. UNKNOWN MEDICATION [Concomitant]
  11. METHOTREXATE [Concomitant]
  12. LORAZEPAM [Concomitant]
  13. TRIAZOLAM [Concomitant]

REACTIONS (3)
  - Drug ineffective [Recovering/Resolving]
  - Product quality issue [Unknown]
  - Drug administration error [Unknown]
